FAERS Safety Report 19500015 (Version 4)
Quarter: 2021Q3

REPORT INFORMATION
  Report Type: Spontaneous
  Country: JP (occurrence: JP)
  Receive Date: 20210707
  Receipt Date: 20210830
  Transmission Date: 20211014
  Serious: Yes (Hospitalization)
  Sender: FDA-Public Use
  Company Number: JP-SUNOVION-2021DSP009631

PATIENT
  Age: 81 Year
  Sex: Female
  Weight: 30.3 kg

DRUGS (6)
  1. SAIKOKARYUKOTSUBOREITO [Concomitant]
     Active Substance: HERBALS
     Indication: SENILE PSYCHOSIS
     Dosage: 1 DF, TID
     Route: 051
     Dates: start: 20190425, end: 20210628
  2. LATUDA [Suspect]
     Active Substance: LURASIDONE HYDROCHLORIDE
     Indication: SENILE PSYCHOSIS
     Dosage: 20 MG, QD
     Route: 051
     Dates: start: 20200817, end: 20200823
  3. LATUDA [Suspect]
     Active Substance: LURASIDONE HYDROCHLORIDE
     Dosage: 40 MG, QD
     Route: 051
     Dates: start: 20200824, end: 20210318
  4. LATUDA [Suspect]
     Active Substance: LURASIDONE HYDROCHLORIDE
     Dosage: 60 MG, QD
     Route: 051
     Dates: start: 20210319, end: 20210628
  5. DAIKENCHUTO [Concomitant]
     Active Substance: HERBALS
     Indication: SUBILEUS
     Dosage: 1 DF, TID
     Route: 051
     Dates: start: 20190125, end: 20210628
  6. GASCON [Concomitant]
     Active Substance: DIMETHICONE
     Indication: SUBILEUS
     Dosage: 40 MG, TID
     Route: 051
     Dates: start: 20190312, end: 20210628

REACTIONS (2)
  - Product use in unapproved indication [Unknown]
  - Platelet count decreased [Recovered/Resolved]

NARRATIVE: CASE EVENT DATE: 20210629
